FAERS Safety Report 6166604-3 (Version None)
Quarter: 2009Q2

REPORT INFORMATION
  Report Type: 
  Country: None (occurrence: None)
  Receive Date: 20090422
  Receipt Date: 20090415
  Transmission Date: 20091009
  Serious: Yes (Other)
  Sender: FDA-Public Use
  Company Number: 090132

PATIENT
  Age: 52 Year
  Sex: Male

DRUGS (1)
  1. GOLYTELY [Suspect]
     Indication: COLONOSCOPY

REACTIONS (3)
  - CONCUSSION [None]
  - FALL [None]
  - LOSS OF CONSCIOUSNESS [None]
